FAERS Safety Report 5926947-2 (Version None)
Quarter: 2008Q4

REPORT INFORMATION
  Report Type: 
  Country: None (occurrence: None)
  Receive Date: 20081022
  Receipt Date: 20081015
  Transmission Date: 20090506
  Serious: Yes (Other)
  Sender: FDA-Public Use
  Company Number: US-ASTRAZENECA-2008UW15667

PATIENT
  Age: 73 Year
  Sex: Female
  Weight: 62.6 kg

DRUGS (10)
  1. ARIMIDEX [Suspect]
     Indication: BREAST CANCER
     Route: 048
     Dates: start: 20060101
  2. COZAAR [Concomitant]
  3. TENORMIN [Concomitant]
     Route: 048
  4. HYDROCHLOROTHIAZIDE [Concomitant]
  5. BETAXOLOL [Concomitant]
     Dosage: 0.5%
  6. ASPIRIN [Concomitant]
  7. CALTRATE [Concomitant]
  8. RECLAST [Concomitant]
     Dosage: INFUSION
  9. CORTISONE [Concomitant]
  10. PILOCARPINE [Concomitant]
     Dosage: 1 DROP EACH EYE

REACTIONS (6)
  - ARTHRITIS [None]
  - JOINT STIFFNESS [None]
  - LIMB OPERATION [None]
  - SJOGREN'S SYNDROME [None]
  - SYNOVIAL CYST [None]
  - TRIGGER FINGER [None]
